FAERS Safety Report 10311656 (Version 1)
Quarter: 2014Q3

REPORT INFORMATION
  Report Type: Spontaneous
  Country: MX (occurrence: MX)
  Receive Date: 20140717
  Receipt Date: 20140717
  Transmission Date: 20150326
  Serious: Yes (Hospitalization)
  Sender: FDA-Public Use
  Company Number: MX-BAYER-2014-103652

PATIENT
  Age: 43 Year
  Sex: Male

DRUGS (1)
  1. BETAFERON [Suspect]
     Active Substance: INTERFERON BETA-1B
     Indication: MULTIPLE SCLEROSIS
     Dosage: UNK, QOD
     Route: 030
     Dates: start: 2013

REACTIONS (5)
  - Pain [None]
  - Headache [None]
  - Tremor [None]
  - Asthenia [None]
  - Speech disorder [None]

NARRATIVE: CASE EVENT DATE: 20140707
